FAERS Safety Report 23738294 (Version 2)
Quarter: 2024Q3

REPORT INFORMATION
  Report Type: Spontaneous
  Country: US (occurrence: US)
  Receive Date: 20240412
  Receipt Date: 20240715
  Transmission Date: 20241016
  Serious: Yes (Other)
  Sender: PFIZER
  Company Number: US-PFIZER INC-202400085279

PATIENT
  Age: 87 Year
  Sex: Female

DRUGS (1)
  1. XELJANZ [Suspect]
     Active Substance: TOFACITINIB CITRATE
     Dosage: 5 MG
     Dates: start: 202403

REACTIONS (5)
  - Renal disorder [Unknown]
  - Urinary tract infection [Unknown]
  - Gait disturbance [Unknown]
  - Dizziness [Unknown]
  - Product dose omission issue [Unknown]
